FAERS Safety Report 8569120 (Version 4)
Quarter: 2013Q4

REPORT INFORMATION
  Report Type: Spontaneous
  Country: US (occurrence: US)
  Receive Date: 20120518
  Receipt Date: 20131115
  Transmission Date: 20140711
  Serious: Yes (Hospitalization)
  Sender: FDA-Public Use
  Company Number: US-US-EMD SERONO, INC.-7132050

PATIENT
  Sex: Male
  Weight: 108 kg

DRUGS (6)
  1. REBIF [Suspect]
     Indication: MULTIPLE SCLEROSIS
     Route: 058
     Dates: start: 20051128
  2. LEXAPRO [Concomitant]
     Indication: DEPRESSION
  3. LEXAPRO [Concomitant]
     Indication: ANXIETY
  4. DIOVAN [Concomitant]
     Indication: BLOOD PRESSURE ABNORMAL
     Dosage: 80/125
  5. ALEVE [Concomitant]
     Indication: PREMEDICATION
  6. PROVIGIL [Concomitant]
     Indication: PRODUCT USED FOR UNKNOWN INDICATION

REACTIONS (4)
  - Optic neuritis [Not Recovered/Not Resolved]
  - Injection site induration [Not Recovered/Not Resolved]
  - Injection site pain [Unknown]
  - Injection site erythema [Unknown]
